FAERS Safety Report 8374943-0 (Version None)
Quarter: 2012Q2

REPORT INFORMATION
  Report Type: 
  Country: None (occurrence: None)
  Receive Date: 20120521
  Receipt Date: 20120511
  Transmission Date: 20120825
  Serious: Yes (Hospitalization)
  Sender: FDA-Public Use
  Company Number: GB-ROCHE-1068198

PATIENT
  Sex: Female
  Weight: 79 kg

DRUGS (1)
  1. MABTHERA [Suspect]
     Indication: RHEUMATOID ARTHRITIS
     Dosage: LAST DOSE PRIOR TO SAE 19 JAN 2012
     Dates: start: 20100204

REACTIONS (2)
  - DYSPNOEA [None]
  - LUNG DISORDER [None]
